FAERS Safety Report 16529165 (Version 1)
Quarter: 2019Q3

REPORT INFORMATION
  Report Type: Spontaneous
  Country: US (occurrence: US)
  Receive Date: 20190704
  Receipt Date: 20190704
  Transmission Date: 20191004
  Serious: No
  Sender: FDA-Public Use
  Company Number: US-GW PHARMA-201904USGW1190

PATIENT

DRUGS (2)
  1. EPIDIOLEX [Suspect]
     Active Substance: CANNABIDIOL
     Indication: IDIOPATHIC GENERALISED EPILEPSY
     Dosage: 70 MILLIGRAM, BID (4.6 MG/KG)
     Route: 048
     Dates: start: 2019
  2. EPIDIOLEX [Suspect]
     Active Substance: CANNABIDIOL
     Dosage: 140 MILLIGRAM, BID (9.18 MG/KG)
     Route: 048
     Dates: start: 2019

REACTIONS (3)
  - Lethargy [Unknown]
  - Off label use [Unknown]
  - Urinary retention [Unknown]

NARRATIVE: CASE EVENT DATE: 2019
